FAERS Safety Report 9504421 (Version 1)
Quarter: 2013Q3

REPORT INFORMATION
  Report Type: Spontaneous
  Country: US (occurrence: US)
  Receive Date: 20130906
  Receipt Date: 20130906
  Transmission Date: 20140515
  Serious: Yes (Other)
  Sender: FDA-Public Use
  Company Number: US-BRISTOL-MYERS SQUIBB COMPANY-19220862

PATIENT
  Age: 76 Year
  Sex: Female
  Weight: 78 kg

DRUGS (5)
  1. COUMADIN [Suspect]
     Indication: ATRIAL FIBRILLATION
     Dosage: 1 DF: 2MG THREE DAYS A WEEK AND COUMADIN 1MG FOUR DAYS A WEEK
  2. LANOXIN [Concomitant]
  3. NORVASC [Concomitant]
  4. LOVAZA [Concomitant]
  5. TRAMADOL [Concomitant]

REACTIONS (2)
  - Spinal disorder [Unknown]
  - International normalised ratio fluctuation [Unknown]
